FAERS Safety Report 19132227 (Version 1)
Quarter: 2021Q2

REPORT INFORMATION
  Report Type: Spontaneous
  Country: ES (occurrence: ES)
  Receive Date: 20210413
  Receipt Date: 20210413
  Transmission Date: 20210717
  Serious: Yes (Other)
  Sender: FDA-Public Use
  Company Number: ES-TEVA-2021-ES-1899183

PATIENT
  Age: 90 Year
  Sex: Female
  Weight: 64 kg

DRUGS (5)
  1. TRAZODONA HIDROCLORURO (3160CH) [Concomitant]
     Active Substance: TRAZODONE HYDROCHLORIDE
     Dosage: 100MILLIGRAM
     Route: 048
  2. QUETIAPINA (1136A) [Suspect]
     Active Substance: QUETIAPINE
     Dosage: 100MILLLIGRAM
     Route: 048
     Dates: start: 20210312
  3. ENALAPRIL MALEATO (2142MA) [Concomitant]
     Active Substance: ENALAPRIL MALEATE
     Indication: HYPERTENSION
     Dosage: 5MILLIGRAM
     Route: 048
  4. BISOPROLOL (2328A) [Concomitant]
     Active Substance: BISOPROLOL
     Dosage: 2.5MILLLIGRAM
     Route: 048
  5. AXURA 20 MG COMPRIMIDOS RECUBIERTOS CON PELICULA, 56 COMPRIMIDOS [Suspect]
     Active Substance: MEMANTINE HYDROCHLORIDE
     Indication: DEMENTIA ALZHEIMER^S TYPE
     Dosage: 20MILLLIGRAM
     Route: 048
     Dates: start: 20200813

REACTIONS (2)
  - Pulmonary embolism [Recovering/Resolving]
  - Deep vein thrombosis [Recovering/Resolving]

NARRATIVE: CASE EVENT DATE: 20210311
